FAERS Safety Report 5547647-7 (Version None)
Quarter: 2007Q4

REPORT INFORMATION
  Report Type: 
  Country: None (occurrence: None)
  Receive Date: 20071211
  Receipt Date: 20071205
  Transmission Date: 20080405
  Serious: Yes (Other)
  Sender: FDA-Public Use
  Company Number: JP-BOEHRINGER INGELHEIM PHARMACEUTICALS, INC.-2007-BP-24651NB

PATIENT
  Sex: Female
  Weight: 68 kg

DRUGS (6)
  1. MICARDIS [Suspect]
     Indication: HYPERTENSION
     Route: 048
     Dates: start: 20070814, end: 20071012
  2. ACTOS [Concomitant]
     Indication: DIABETES MELLITUS
     Route: 048
     Dates: start: 20060526, end: 20071012
  3. MEDET [Concomitant]
     Indication: DIABETES MELLITUS
     Route: 048
     Dates: start: 20060915
  4. MYSER (DIFLUPREDNATE) [Concomitant]
     Indication: PSORIASIS
     Route: 062
     Dates: start: 20060526
  5. TIGASON (ETRETINATE) [Concomitant]
     Indication: PSORIASIS
     Route: 048
     Dates: start: 20070309
  6. PREDONINE (PREDNISOLONE ACETATE) [Concomitant]
     Indication: PSORIASIS
     Route: 062
     Dates: start: 20070831

REACTIONS (3)
  - OEDEMA [None]
  - PULMONARY OEDEMA [None]
  - WEIGHT INCREASED [None]
